FAERS Safety Report 4752142-9 (Version None)
Quarter: 2005Q3

REPORT INFORMATION
  Report Type: 
  Country: None (occurrence: None)
  Receive Date: 20050825
  Receipt Date: 20050812
  Transmission Date: 20060218
  Serious: Yes (Hospitalization, Other)
  Sender: FDA-Public Use
  Company Number: DE-JNJFOC-20050800028

PATIENT
  Sex: Male
  Weight: 26.4 kg

DRUGS (1)
  1. CONCERTA [Suspect]
     Indication: DRUG USE FOR UNKNOWN INDICATION
     Dosage: TREATMENT STARTED FROM SUMMER 2003.
     Route: 048

REACTIONS (2)
  - OPTIC DISC HAEMORRHAGE [None]
  - TIC [None]
